FAERS Safety Report 8116908-X (Version None)
Quarter: 2012Q1

REPORT INFORMATION
  Report Type: 
  Country: None (occurrence: None)
  Receive Date: 20120206
  Receipt Date: 20120130
  Transmission Date: 20120608
  Serious: Yes (Other)
  Sender: FDA-Public Use
  Company Number: PHHY2012GB007674

PATIENT
  Age: 15 Year
  Sex: Female
  Weight: 52.4 kg

DRUGS (20)
  1. ALBUTEROL SULFATE AUTOHALER [Concomitant]
  2. VITAMIN E [Concomitant]
     Indication: CYSTIC FIBROSIS
     Dosage: 75 IU, QD
  3. VITAMIN K TAB [Concomitant]
     Indication: CYSTIC FIBROSIS
     Route: 048
  4. TOBRAMYCIN [Suspect]
     Indication: CYSTIC FIBROSIS
     Route: 042
     Dates: start: 20111207, end: 20111227
  5. COLISTIN SULFATE [Concomitant]
     Indication: CYSTIC FIBROSIS
     Dosage: 2000000 IU, BID
  6. VITAMIN B COMPLEX CAP [Concomitant]
     Indication: CYSTIC FIBROSIS
     Route: 048
  7. DEOXYRIBONUCLEASE, BOVINE [Concomitant]
     Indication: CYSTIC FIBROSIS
     Dosage: 2.5 MG, QD
  8. ASCORBIC ACID [Concomitant]
     Indication: CYSTIC FIBROSIS
     Route: 048
  9. PROCAL [Concomitant]
     Dosage: 140 ML, QD
  10. MENADIOL [Concomitant]
     Dosage: 1 ML, QD
  11. OMEPRAZOLE [Concomitant]
     Dosage: 20 MG, QD
     Route: 048
  12. SENOKOT [Concomitant]
     Dosage: 10 ML, QD
  13. MULTI-VITAMINS [Concomitant]
  14. ACETYLCYSTEINE [Concomitant]
  15. CREON [Concomitant]
     Indication: CYSTIC FIBROSIS
     Route: 048
  16. VITAMIN A [Concomitant]
     Indication: CYSTIC FIBROSIS
     Route: 048
  17. OSMOLITE [Concomitant]
     Dosage: 900 MG, UNK
  18. MEROPENEM [Suspect]
     Indication: CYSTIC FIBROSIS
     Route: 042
     Dates: start: 20111207, end: 20111227
  19. MOVIPREP [Concomitant]
     Dosage: 0.5 DF, TID
  20. URSODIOL [Concomitant]
     Indication: CYSTIC FIBROSIS
     Dosage: 500 MG, BID
     Route: 048

REACTIONS (2)
  - DECREASED APPETITE [None]
  - AGEUSIA [None]
